FAERS Safety Report 5969145-9 (Version None)
Quarter: 2008Q4

REPORT INFORMATION
  Report Type: 
  Country: None (occurrence: None)
  Receive Date: 20081126
  Receipt Date: 20081119
  Transmission Date: 20090506
  Serious: Yes (Death)
  Sender: FDA-Public Use
  Company Number: TH-BAXTER-2008BH012740

PATIENT
  Age: 24 Month
  Sex: Male

DRUGS (2)
  1. DIANEAL [Suspect]
     Indication: PERITONEAL DIALYSIS
     Route: 033
     Dates: start: 20080701, end: 20081118
  2. DIANEAL [Suspect]
     Route: 033
     Dates: start: 20080101, end: 20080701

REACTIONS (1)
  - CARDIAC FAILURE [None]
